FAERS Safety Report 6123296-7 (Version None)
Quarter: 2009Q1

REPORT INFORMATION
  Report Type: 
  Country: None (occurrence: None)
  Receive Date: 20090318
  Receipt Date: 20090306
  Transmission Date: 20090719
  Serious: Yes (Disabling)
  Sender: FDA-Public Use
  Company Number: SE-ROCHE-619424

PATIENT
  Age: 24 Year
  Sex: Male
  Weight: 60 kg

DRUGS (2)
  1. ROACCUTAN [Suspect]
     Indication: ACNE
     Dosage: TOTAL ISOTRETINOIN RECEIVED: 6000 MG.
     Route: 048
     Dates: start: 20050101
  2. ROACCUTAN [Suspect]
     Dosage: TOTAL ISOTRETINOIN RECEIVED: 5000 MG.
     Route: 048
     Dates: end: 20060301

REACTIONS (4)
  - ABDOMINAL DISTENSION [None]
  - FLATULENCE [None]
  - FREQUENT BOWEL MOVEMENTS [None]
  - IRRITABLE BOWEL SYNDROME [None]
